FAERS Safety Report 20281762 (Version 1)
Quarter: 2022Q1

REPORT INFORMATION
  Report Type: Spontaneous
  Country: CN (occurrence: None)
  Receive Date: 20220103
  Receipt Date: 20220103
  Transmission Date: 20220423
  Serious: Yes (Life-Threatening, Hospitalization, Other)
  Sender: FDA-Public Use
  Company Number: 2021A908623

PATIENT
  Age: 72 Year
  Sex: Female

DRUGS (1)
  1. TAGRISSO [Suspect]
     Active Substance: OSIMERTINIB
     Route: 048

REACTIONS (14)
  - Rash [Unknown]
  - Diarrhoea [Unknown]
  - Asthma [Unknown]
  - Cough [Unknown]
  - Coma [Unknown]
  - Loss of consciousness [Unknown]
  - Interstitial lung disease [Unknown]
  - Protein total decreased [Unknown]
  - Generalised oedema [Unknown]
  - Pyrexia [Unknown]
  - Pulmonary fibrosis [Unknown]
  - Condition aggravated [Unknown]
  - Metastases to lung [Unknown]
  - Multiple organ dysfunction syndrome [Unknown]
